FAERS Safety Report 21390908 (Version 1)
Quarter: 2022Q3

REPORT INFORMATION
  Report Type: Spontaneous
  Country: IN (occurrence: IN)
  Receive Date: 20220929
  Receipt Date: 20220929
  Transmission Date: 20221027
  Serious: Yes (Other)
  Sender: FDA-Public Use
  Company Number: IN-MLMSERVICE-20220913-3786659-1

PATIENT
  Age: 30 Year
  Sex: Male

DRUGS (1)
  1. OLANZAPINE [Suspect]
     Active Substance: OLANZAPINE
     Indication: Schizophrenia
     Dosage: UNKNOWN
     Route: 048

REACTIONS (3)
  - Retrograde ejaculation [Recovered/Resolved]
  - Sedation [Unknown]
  - Oculogyric crisis [Unknown]
